FAERS Safety Report 9515673 (Version 3)
Quarter: 2014Q2

REPORT INFORMATION
  Report Type: Spontaneous
  Country: US (occurrence: US)
  Receive Date: 20130911
  Receipt Date: 20140602
  Transmission Date: 20141212
  Serious: Yes (Hospitalization)
  Sender: FDA-Public Use
  Company Number: US-BAYER-2013-109596

PATIENT
  Age: 24 Year
  Sex: Female

DRUGS (6)
  1. YASMIN [Suspect]
     Dosage: UNK
     Dates: start: 2003, end: 200512
  2. MOBIC [Concomitant]
  3. LORCET [Concomitant]
  4. CIPRO [Concomitant]
     Indication: CYSTITIS
     Dosage: 500 MG (4 DOSES)
     Route: 048
     Dates: start: 200512
  5. CELEBREX [Concomitant]
  6. LEVAQUIN [Concomitant]

REACTIONS (3)
  - Deep vein thrombosis [None]
  - Pelvic venous thrombosis [None]
  - Deep vein thrombosis [None]
